FAERS Safety Report 5952706-0 (Version None)
Quarter: 2008Q4

REPORT INFORMATION
  Report Type: 
  Country: None (occurrence: None)
  Receive Date: 20081114
  Receipt Date: 20081105
  Transmission Date: 20090506
  Serious: No
  Sender: FDA-Public Use
  Company Number: US-B.I. PHARMACEUTICALS,INC./RIDGEFIELD-2008-BP-16952BP

PATIENT
  Sex: Female

DRUGS (3)
  1. ATROVENT HFA [Suspect]
     Indication: PANIC ATTACK
     Dosage: 136MCG
     Route: 055
     Dates: start: 20040101
  2. ATROVENT HFA [Suspect]
     Indication: EXPOSURE TO TOXIC AGENT
  3. PROVENTIL [Concomitant]

REACTIONS (2)
  - INTRAOCULAR PRESSURE INCREASED [None]
  - PANIC ATTACK [None]
